FAERS Safety Report 25492860 (Version 4)
Quarter: 2025Q4

REPORT INFORMATION
  Report Type: Other
  Country: US (occurrence: US)
  Receive Date: 20250630
  Receipt Date: 20251001
  Transmission Date: 20260117
  Serious: No
  Sender: TRAVERE THERAPEUTICS
  Company Number: US-TRAVERE-2025TVT00786

PATIENT
  Sex: Male

DRUGS (1)
  1. FILSPARI [Suspect]
     Active Substance: SPARSENTAN
     Indication: Proteinuria
     Dosage: 800 MG DAILY DOSE (400 MG X 2)
     Route: 048

REACTIONS (1)
  - Product use in unapproved indication [Unknown]
